FAERS Safety Report 6435615-2 (Version None)
Quarter: 2009Q4

REPORT INFORMATION
  Report Type: 
  Country: None (occurrence: None)
  Receive Date: 20091111
  Receipt Date: 20091110
  Transmission Date: 20100525
  Serious: Yes (Hospitalization)
  Sender: FDA-Public Use
  Company Number: FR-WYE-G04842509

PATIENT
  Sex: Male

DRUGS (2)
  1. ADVIL [Suspect]
     Indication: PYREXIA
     Dosage: ONE SINGLE TABLET OF 200 MG
     Route: 048
     Dates: start: 20090930, end: 20090930
  2. ZONEGRAN [Suspect]
     Indication: EPILEPSY
     Dosage: 50 MG IN THE MORNING AND 150 MG IN THE EVENING
     Route: 048
     Dates: start: 20081001, end: 20091002

REACTIONS (4)
  - CONDITION AGGRAVATED [None]
  - CONVULSION [None]
  - RENAL FAILURE ACUTE [None]
  - RENAL TUBULAR NECROSIS [None]
